FAERS Safety Report 19857140 (Version 1)
Quarter: 2021Q3

REPORT INFORMATION
  Report Type: Report from Study
  Country: None (occurrence: US)
  Receive Date: 20210920
  Receipt Date: 20210920
  Transmission Date: 20211014
  Serious: Yes (Other)
  Sender: FDA-Public Use
  Company Number: US-ABBVIE-21K-163-4060232-00

PATIENT
  Sex: Female

DRUGS (2)
  1. CREON [Suspect]
     Active Substance: PANCRELIPASE AMYLASE\PANCRELIPASE LIPASE\PANCRELIPASE PROTEASE
     Indication: PANCREATIC DISORDER
     Dosage: FOUR CAPSULES PER MEAL AND TWO CAPSULES PER SNACK
     Route: 048
     Dates: start: 2016, end: 202101
  2. CREON [Suspect]
     Active Substance: PANCRELIPASE AMYLASE\PANCRELIPASE LIPASE\PANCRELIPASE PROTEASE
     Indication: PANCREATIC ENZYMES DECREASED
     Dosage: FOUR CAPSULES PER MEAL AND TWO CAPSULES PER SNACK
     Route: 048
     Dates: start: 2021, end: 202107

REACTIONS (9)
  - Pain [Not Recovered/Not Resolved]
  - Dyspepsia [Not Recovered/Not Resolved]
  - Weight decreased [Recovering/Resolving]
  - Product prescribing issue [Unknown]
  - Gastrointestinal pain [Recovered/Resolved]
  - Diarrhoea [Recovering/Resolving]
  - Anal incontinence [Unknown]
  - Haemorrhoids [Unknown]
  - Anal sphincter atony [Unknown]

NARRATIVE: CASE EVENT DATE: 2018
